FAERS Safety Report 25191999 (Version 1)
Quarter: 2025Q2

REPORT INFORMATION
  Report Type: Spontaneous
  Country: US (occurrence: US)
  Receive Date: 20250414
  Receipt Date: 20250414
  Transmission Date: 20250716
  Serious: Yes (Other)
  Sender: ORGANON
  Company Number: US-ORGANON-O2504USA000466

PATIENT
  Age: 31 Year
  Sex: Female
  Weight: 66 kg

DRUGS (1)
  1. NEXPLANON [Suspect]
     Active Substance: ETONOGESTREL
     Indication: Contraception
     Route: 059
     Dates: start: 20250226

REACTIONS (5)
  - Menstruation irregular [Not Recovered/Not Resolved]
  - Discomfort [Not Recovered/Not Resolved]
  - Device implantation error [Not Recovered/Not Resolved]
  - Device deployment issue [Not Recovered/Not Resolved]
  - Product quality issue [Unknown]

NARRATIVE: CASE EVENT DATE: 20250226
